FAERS Safety Report 4500956-2 (Version None)
Quarter: 2004Q4

REPORT INFORMATION
  Report Type: 
  Country: None (occurrence: None)
  Receive Date: 20041115
  Receipt Date: 20041101
  Transmission Date: 20050328
  Serious: Yes (Death)
  Sender: FDA-Public Use
  Company Number: US-ROCHE-385182

PATIENT
  Age: 65 Year
  Sex: Male

DRUGS (7)
  1. TORADOL [Suspect]
     Indication: MIGRAINE
     Route: 050
  2. DILAUDID [Concomitant]
     Indication: MIGRAINE
     Route: 050
  3. PHENERGAN [Concomitant]
     Indication: MIGRAINE
     Route: 050
  4. IMITREX [Concomitant]
  5. LORTAB [Concomitant]
  6. VALIUM [Concomitant]
  7. DARVOCET [Concomitant]

REACTIONS (3)
  - DEATH [None]
  - MEDICATION ERROR [None]
  - RESPIRATORY ARREST [None]
